FAERS Safety Report 14230620 (Version 1)
Quarter: 2017Q4

REPORT INFORMATION
  Report Type: Spontaneous
  Country: CH (occurrence: CH)
  Receive Date: 20171128
  Receipt Date: 20171128
  Transmission Date: 20180321
  Serious: Yes (Hospitalization, Other)
  Sender: FDA-Public Use
  Company Number: CH-PFIZER INC-2017504478

PATIENT
  Age: 52 Year
  Sex: Female

DRUGS (1)
  1. MEDROL [Suspect]
     Active Substance: METHYLPREDNISOLONE
     Indication: CLINICALLY ISOLATED SYNDROME
     Dosage: HIGHLY DOSED
     Route: 048

REACTIONS (2)
  - Pyelonephritis [Unknown]
  - Calculus urinary [Unknown]
